FAERS Safety Report 4319564-1 (Version None)
Quarter: 2004Q1

REPORT INFORMATION
  Report Type: 
  Country: None (occurrence: None)
  Receive Date: 20040315
  Receipt Date: 20040309
  Transmission Date: 20041129
  Serious: Yes (Other)
  Sender: FDA-Public Use
  Company Number: 2003-08-0951

PATIENT
  Age: 55 Year
  Sex: Male
  Weight: 112.9457 kg

DRUGS (9)
  1. PEG-INTRON [Suspect]
     Indication: HEPATITIS B
     Dosage: 150 MCG QW SUBCUTANEOUS
     Route: 058
     Dates: start: 20030112
  2. PEG-INTRON [Suspect]
     Indication: HEPATITIS C
     Dosage: 150 MCG QW SUBCUTANEOUS
     Route: 058
     Dates: start: 20030112
  3. REBETOL [Suspect]
     Indication: HEPATITIS B
     Dosage: 1400 MG QD ORAL
     Route: 048
     Dates: start: 20030112
  4. REBETOL [Suspect]
     Indication: HEPATITIS C
     Dosage: 1400 MG QD ORAL
     Route: 048
     Dates: start: 20030112
  5. VALIUM [Suspect]
  6. OXYCONTIN [Concomitant]
  7. AMBIEN [Concomitant]
  8. ASPIRIN [Concomitant]
  9. MULTI-VITAMINS [Concomitant]

REACTIONS (6)
  - DIZZINESS [None]
  - DRY MOUTH [None]
  - SKIN LESION [None]
  - TOOTH ABSCESS [None]
  - TOOTH DISORDER [None]
  - TOOTH EXTRACTION [None]
